FAERS Safety Report 22287413 (Version 1)
Quarter: 2023Q2

REPORT INFORMATION
  Report Type: Spontaneous
  Country: US (occurrence: None)
  Receive Date: 20230505
  Receipt Date: 20230505
  Transmission Date: 20230722
  Serious: No
  Sender: FDA-Public Use
  Company Number: US-Hikma Pharmaceuticals USA Inc.-US-H14001-22-01969

PATIENT
  Age: 70 Year
  Sex: Male

DRUGS (6)
  1. AMIKACIN [Suspect]
     Active Substance: AMIKACIN
     Indication: Cutaneous tuberculosis
     Route: 041
     Dates: start: 20220502
  2. AMIKACIN [Suspect]
     Active Substance: AMIKACIN
     Route: 041
     Dates: start: 20220706
  3. NUZYRA [Suspect]
     Active Substance: OMADACYCLINE
     Indication: Infective tenosynovitis
     Route: 048
     Dates: start: 202204
  4. NUZYRA [Suspect]
     Active Substance: OMADACYCLINE
     Indication: Cutaneous tuberculosis
  5. AZITHROMYCIN [Suspect]
     Active Substance: AZITHROMYCIN
     Indication: Product used for unknown indication
     Route: 065
     Dates: start: 202205
  6. RIFABUTIN [Suspect]
     Active Substance: RIFABUTIN
     Indication: Product used for unknown indication
     Route: 065
     Dates: start: 202205

REACTIONS (1)
  - Joint swelling [Recovering/Resolving]

NARRATIVE: CASE EVENT DATE: 20220515
